FAERS Safety Report 19123644 (Version 8)
Quarter: 2022Q1

REPORT INFORMATION
  Report Type: Report from Study
  Country: CO (occurrence: CO)
  Receive Date: 20210412
  Receipt Date: 20220310
  Transmission Date: 20220424
  Serious: Yes (Life-Threatening, Other)
  Sender: FDA-Public Use
  Company Number: NVSC2021CO080503

PATIENT
  Sex: Female

DRUGS (2)
  1. KISQALI [Suspect]
     Active Substance: RIBOCICLIB
     Indication: Hormone receptor positive HER2 negative breast cancer
     Dosage: 600 MG, QD
     Route: 048
  2. TRAMADOL [Concomitant]
     Active Substance: TRAMADOL
     Indication: Product used for unknown indication
     Dosage: UNK
     Route: 065

REACTIONS (17)
  - Ill-defined disorder [Recovering/Resolving]
  - Gallbladder disorder [Unknown]
  - Anaemia [Unknown]
  - Malaise [Recovering/Resolving]
  - Illness [Unknown]
  - Hepatic pain [Unknown]
  - Rebound effect [Unknown]
  - Feeding disorder [Unknown]
  - Eye disorder [Unknown]
  - Biliary colic [Unknown]
  - Peripheral swelling [Unknown]
  - Headache [Unknown]
  - Vomiting [Unknown]
  - Musculoskeletal discomfort [Unknown]
  - Bone atrophy [Unknown]
  - Pain [Unknown]
  - Product supply issue [Unknown]
